FAERS Safety Report 7224730-1 (Version None)
Quarter: 2011Q1

REPORT INFORMATION
  Report Type: 
  Country: None (occurrence: None)
  Receive Date: 20110113
  Receipt Date: 20110106
  Transmission Date: 20110831
  Serious: Yes (Death)
  Sender: FDA-Public Use
  Company Number: US-JNJFOC-20110101629

PATIENT
  Age: 57 Year
  Sex: Male

DRUGS (8)
  1. DIPHENHYDRAMINE HYDROCHLORIDE [Suspect]
     Indication: SUICIDE ATTEMPT
     Route: 048
  2. HYDROCODONE [Suspect]
     Indication: SUICIDE ATTEMPT
     Route: 048
  3. ACETAMINOPHEN [Suspect]
     Route: 048
  4. NON THERAPEUTIC PRODUCT [Suspect]
     Indication: SUICIDE ATTEMPT
     Route: 048
  5. ETHANOL [Suspect]
     Indication: SUICIDE ATTEMPT
     Route: 048
  6. ACETAMINOPHEN [Suspect]
     Indication: SUICIDE ATTEMPT
     Route: 048
  7. COCAINE [Suspect]
     Indication: SUICIDE ATTEMPT
     Route: 048
  8. DILTIAZEM [Suspect]
     Indication: SUICIDE ATTEMPT
     Route: 048

REACTIONS (4)
  - COMPLETED SUICIDE [None]
  - TOXICITY TO VARIOUS AGENTS [None]
  - RESPIRATORY ARREST [None]
  - CARDIAC ARREST [None]
